FAERS Safety Report 21146536 (Version 1)
Quarter: 2022Q3

REPORT INFORMATION
  Report Type: Spontaneous
  Country: DE (occurrence: DE)
  Receive Date: 20220729
  Receipt Date: 20220729
  Transmission Date: 20221026
  Serious: No
  Sender: FDA-Public Use
  Company Number: None

PATIENT
  Age: 59 Year
  Sex: Male
  Weight: 64 kg

DRUGS (2)
  1. CEFUROXIME AXETIL [Suspect]
     Active Substance: CEFUROXIME AXETIL
     Indication: Rectal abscess
     Dosage: 500 MILLIGRAM, BID
     Route: 048
     Dates: start: 20210924, end: 20211002
  2. CEFUROXIME AXETIL [Suspect]
     Active Substance: CEFUROXIME AXETIL
     Indication: Borrelia infection

REACTIONS (1)
  - Genital infection fungal [Not Recovered/Not Resolved]

NARRATIVE: CASE EVENT DATE: 20211002
